FAERS Safety Report 7639336-X (Version None)
Quarter: 2011Q3

REPORT INFORMATION
  Report Type: 
  Country: None (occurrence: None)
  Receive Date: 20110721
  Receipt Date: 20110707
  Transmission Date: 20111222
  Serious: Yes (Death, Hospitalization)
  Sender: FDA-Public Use
  Company Number: 1000022192

PATIENT
  Age: 90 Year
  Sex: Male

DRUGS (4)
  1. ESCITALOPRAM OXALATE [Suspect]
     Dosage: 20 MG (20 MG,1 IN 1 D),ORAL
     Route: 048
     Dates: end: 20110429
  2. ASPIRIN [Suspect]
     Dosage: 100 MG (100 MG,1 IN 1 D),ORAL
     Route: 048
     Dates: end: 20110429
  3. DISTRANEURIN (CLOMETHIAZOLE) (CLOMETHIAZOLE) [Concomitant]
  4. SEROQUEL (QUETIAPINE) (QUETIAPINE) [Concomitant]

REACTIONS (7)
  - NEUROPATHY PERIPHERAL [None]
  - CEREBRAL HAEMORRHAGE [None]
  - INJURY [None]
  - FALL [None]
  - HEMIPARESIS [None]
  - APHASIA [None]
  - HEMIANOPIA [None]
